FAERS Safety Report 10364614 (Version 1)
Quarter: 2014Q3

REPORT INFORMATION
  Report Type: Spontaneous
  Country: US (occurrence: US)
  Receive Date: 20140806
  Receipt Date: 20140806
  Transmission Date: 20150326
  Serious: Yes (Other)
  Sender: FDA-Public Use
  Company Number: US-ASTRAZENECA-2014SE55576

PATIENT
  Age: 71 Year
  Sex: Female
  Weight: 100.2 kg

DRUGS (24)
  1. TOPROL XL [Suspect]
     Active Substance: METOPROLOL SUCCINATE
     Indication: ATRIAL FIBRILLATION
     Dosage: VARIABLE DOSES BID
     Route: 048
     Dates: start: 2013
  2. SYNTHROID [Concomitant]
     Active Substance: LEVOTHYROXINE SODIUM
     Indication: HYPOTHYROIDISM
     Route: 048
     Dates: start: 1987
  3. DEXILANT DR [Concomitant]
     Indication: GASTROOESOPHAGEAL REFLUX DISEASE
     Route: 048
     Dates: start: 2011
  4. POTASSIUM CHLORIDE. [Concomitant]
     Active Substance: POTASSIUM CHLORIDE
     Indication: ELECTROLYTE SUBSTITUTION THERAPY
     Route: 048
  5. PROVIGIL [Concomitant]
     Active Substance: MODAFINIL
     Indication: SOMNOLENCE
     Route: 048
     Dates: start: 2008
  6. TRAZODONE [Concomitant]
     Active Substance: TRAZODONE HYDROCHLORIDE
     Indication: SLEEP DISORDER
     Route: 048
     Dates: start: 201401
  7. KLONOPIN [Concomitant]
     Active Substance: CLONAZEPAM
     Indication: MUSCLE RELAXANT THERAPY
     Dosage: HALF OR ONE .5MG TAB HS
     Route: 048
     Dates: start: 2013
  8. TOPROL XL [Suspect]
     Active Substance: METOPROLOL SUCCINATE
     Indication: ATRIAL FIBRILLATION
     Route: 048
     Dates: start: 2013
  9. ZYRTEC [Concomitant]
     Active Substance: CETIRIZINE HYDROCHLORIDE
     Indication: ANTIALLERGIC THERAPY
     Dosage: 10MG LIQUID GEL HS
     Route: 048
  10. TOPROL XL [Suspect]
     Active Substance: METOPROLOL SUCCINATE
     Indication: ATRIAL FIBRILLATION
     Route: 048
  11. GENERIC FOR ALDACTONE [Concomitant]
     Indication: SUPPORTIVE CARE
     Route: 048
     Dates: start: 2013
  12. METOPROLOL [Suspect]
     Active Substance: METOPROLOL
     Indication: CARDIAC FAILURE CONGESTIVE
     Route: 048
     Dates: start: 2013, end: 2013
  13. DYMISTA [Concomitant]
     Active Substance: AZELASTINE HYDROCHLORIDE\FLUTICASONE PROPIONATE
     Indication: UPPER-AIRWAY COUGH SYNDROME
     Dosage: 2 SPRAYS DAILY
     Route: 045
     Dates: start: 201401
  14. TOPROL XL [Suspect]
     Active Substance: METOPROLOL SUCCINATE
     Indication: CARDIAC FAILURE CONGESTIVE
     Route: 048
     Dates: start: 2013
  15. TOPROL XL [Suspect]
     Active Substance: METOPROLOL SUCCINATE
     Indication: CARDIAC FAILURE CONGESTIVE
     Dosage: VARIABLE DOSES BID
     Route: 048
     Dates: start: 2013
  16. DYMISTA [Concomitant]
     Active Substance: AZELASTINE HYDROCHLORIDE\FLUTICASONE PROPIONATE
     Indication: MULTIPLE ALLERGIES
     Dosage: 2 SPRAYS DAILY
     Route: 045
     Dates: start: 201401
  17. COUMADIN [Concomitant]
     Active Substance: WARFARIN SODIUM
     Indication: ANTICOAGULANT THERAPY
     Route: 048
     Dates: start: 201312
  18. TOPROL XL [Suspect]
     Active Substance: METOPROLOL SUCCINATE
     Indication: CARDIAC FAILURE CONGESTIVE
     Route: 048
  19. METOPROLOL [Suspect]
     Active Substance: METOPROLOL
     Indication: ATRIAL FIBRILLATION
     Route: 048
     Dates: start: 2013, end: 2013
  20. TENORMIN [Suspect]
     Active Substance: ATENOLOL
     Dosage: UNK UNK
     Route: 048
  21. BUMETANIDE. [Concomitant]
     Active Substance: BUMETANIDE
     Indication: DIURETIC THERAPY
     Dosage: 2 1MG TABLETS DAILY
     Route: 048
     Dates: start: 2008
  22. DIGOXIN. [Concomitant]
     Active Substance: DIGOXIN
     Indication: ATRIAL FIBRILLATION
     Dosage: 125MCG DAILY
     Route: 048
  23. CLARITIN [Concomitant]
     Active Substance: LORATADINE
     Indication: ANTIALLERGIC THERAPY
     Dosage: 10MG LIQUID GEL DAILY
     Route: 048
  24. DIGOXIN. [Concomitant]
     Active Substance: DIGOXIN
     Indication: CARDIAC DISORDER
     Dosage: 125MCG DAILY
     Route: 048

REACTIONS (9)
  - Pulmonary fibrosis [Unknown]
  - Bronchitis [Unknown]
  - Off label use [Unknown]
  - Pneumonia [Unknown]
  - Dyspnoea [Not Recovered/Not Resolved]
  - Fatigue [Unknown]
  - Heart rate irregular [Unknown]
  - Respiratory disorder [Unknown]
  - Drug ineffective [Unknown]

NARRATIVE: CASE EVENT DATE: 2013
